FAERS Safety Report 7386041-3 (Version None)
Quarter: 2011Q1

REPORT INFORMATION
  Report Type: 
  Country: None (occurrence: None)
  Receive Date: 20110331
  Receipt Date: 20110317
  Transmission Date: 20110831
  Serious: Yes (Hospitalization, Other)
  Sender: FDA-Public Use
  Company Number: US-ELI_LILLY_AND_COMPANY-US201010006730

PATIENT
  Sex: Female

DRUGS (2)
  1. FORTEO [Suspect]
     Indication: OSTEOPOROSIS
     Dosage: 20 UG, DAILY (1/D)
     Route: 065
     Dates: start: 20101015
  2. FORTEO [Suspect]
     Dosage: 20 UG, DAILY (1/D)
     Dates: end: 20101201

REACTIONS (8)
  - RENAL DISORDER [None]
  - FEELING ABNORMAL [None]
  - DECREASED APPETITE [None]
  - VOMITING [None]
  - DECREASED ACTIVITY [None]
  - ASTHENIA [None]
  - DIZZINESS [None]
  - NAUSEA [None]
